FAERS Safety Report 24276579 (Version 1)
Quarter: 2024Q3

REPORT INFORMATION
  Report Type: Report from Study
  Country: GB (occurrence: GB)
  Receive Date: 20240903
  Receipt Date: 20240903
  Transmission Date: 20241016
  Serious: Yes (Other)
  Sender: SANDOZ
  Company Number: GB-SANDOZ-SDZ2024GB024710

PATIENT
  Sex: Female

DRUGS (1)
  1. OMNITROPE [Suspect]
     Active Substance: SOMATROPIN
     Indication: Hyperpituitarism
     Dosage: 0.30 MG, QD
     Route: 058
     Dates: start: 20240229

REACTIONS (8)
  - Autism spectrum disorder [Unknown]
  - Crying [Recovered/Resolved]
  - Feeling hot [Unknown]
  - Stress [Not Recovered/Not Resolved]
  - Hyperhidrosis [Recovered/Resolved]
  - Headache [Not Recovered/Not Resolved]
  - Product dose omission issue [Unknown]
  - Product availability issue [Unknown]
